FAERS Safety Report 22803122 (Version 2)
Quarter: 2023Q4

REPORT INFORMATION
  Report Type: Other
  Country: FR (occurrence: FR)
  Receive Date: 20230809
  Receipt Date: 20231123
  Transmission Date: 20240110
  Serious: Yes (Death, Other)
  Sender: FDA-Public Use
  Company Number: FR-ROCHE-3401083

PATIENT
  Age: 15 Year
  Sex: Male

DRUGS (15)
  1. RITUXIMAB [Suspect]
     Active Substance: RITUXIMAB
     Indication: Post transplant lymphoproliferative disorder
     Route: 042
  2. RITUXIMAB [Suspect]
     Active Substance: RITUXIMAB
     Indication: Diffuse large B-cell lymphoma
  3. MYCOPHENOLATE MOFETIL [Suspect]
     Active Substance: MYCOPHENOLATE MOFETIL
     Indication: Prophylaxis against transplant rejection
     Route: 065
  4. TACROLIMUS [Suspect]
     Active Substance: TACROLIMUS
     Indication: Prophylaxis against transplant rejection
     Route: 065
  5. LAPINE T-LYMPHOCYTE IMMUNE GLOBULIN [Suspect]
     Active Substance: LAPINE T-LYMPHOCYTE IMMUNE GLOBULIN
     Indication: Prophylaxis against transplant rejection
     Route: 065
  6. CYCLOPHOSPHAMIDE [Suspect]
     Active Substance: CYCLOPHOSPHAMIDE
     Indication: Post transplant lymphoproliferative disorder
     Route: 065
  7. VINCRISTINE [Suspect]
     Active Substance: VINCRISTINE
     Indication: Post transplant lymphoproliferative disorder
     Route: 065
  8. PREDNISOLONE [Suspect]
     Active Substance: PREDNISOLONE
     Indication: Post transplant lymphoproliferative disorder
     Route: 065
  9. DOXORUBICIN [Suspect]
     Active Substance: DOXORUBICIN
     Indication: Post transplant lymphoproliferative disorder
     Route: 065
  10. DEXAMETHASONE [Suspect]
     Active Substance: DEXAMETHASONE
     Indication: Diffuse large B-cell lymphoma
     Route: 065
  11. CYTARABINE [Suspect]
     Active Substance: CYTARABINE
     Indication: Diffuse large B-cell lymphoma
     Dosage: HIGH DOSE
     Route: 065
  12. CARBOPLATIN [Suspect]
     Active Substance: CARBOPLATIN
     Indication: Diffuse large B-cell lymphoma
     Route: 065
  13. ESOMEPRAZOLE [Concomitant]
     Active Substance: ESOMEPRAZOLE
  14. SUCRALFATE [Concomitant]
     Active Substance: SUCRALFATE
  15. TRANEXAMIC ACID [Concomitant]
     Active Substance: TRANEXAMIC ACID

REACTIONS (5)
  - Diffuse large B-cell lymphoma [Fatal]
  - Disease progression [Fatal]
  - Epstein-Barr virus infection reactivation [Unknown]
  - Post transplant lymphoproliferative disorder [Unknown]
  - Gastrointestinal haemorrhage [Unknown]
